FAERS Safety Report 14392872 (Version 1)
Quarter: 2018Q1

REPORT INFORMATION
  Report Type: Spontaneous
  Country: US (occurrence: US)
  Receive Date: 20180113
  Receipt Date: 20180113
  Transmission Date: 20180509
  Serious: No
  Sender: FDA-Public Use
  Company Number: None

PATIENT
  Sex: Male
  Weight: 65.25 kg

DRUGS (1)
  1. CIALIS [Suspect]
     Active Substance: TADALAFIL
     Indication: BENIGN PROSTATIC HYPERPLASIA
     Dosage: ?          QUANTITY:30 TABLET(S);?
     Route: 048
     Dates: start: 20160623, end: 20171205

REACTIONS (5)
  - Anger [None]
  - Thinking abnormal [None]
  - Mental disorder [None]
  - Accident [None]
  - Suicidal ideation [None]

NARRATIVE: CASE EVENT DATE: 20171122
